FAERS Safety Report 8236273-7 (Version None)
Quarter: 2012Q1

REPORT INFORMATION
  Report Type: 
  Country: None (occurrence: None)
  Receive Date: 20120309
  Receipt Date: 20110729
  Transmission Date: 20120608
  Serious: Yes (Hospitalization)
  Sender: FDA-Public Use
  Company Number: PHHY2011US69235

PATIENT
  Age: 44 Year
  Sex: Male

DRUGS (1)
  1. EXTAVIA [Suspect]
     Indication: MULTIPLE SCLEROSIS
     Dosage: 0.25 MG, QOD, SUBCUTAANEOUS
     Route: 058
     Dates: start: 20101001

REACTIONS (2)
  - URINARY TRACT INFECTION [None]
  - GRAND MAL CONVULSION [None]
